FAERS Safety Report 23221697 (Version 1)
Quarter: 2023Q4

REPORT INFORMATION
  Report Type: Spontaneous
  Country: US (occurrence: US)
  Receive Date: 20231123
  Receipt Date: 20231123
  Transmission Date: 20240110
  Serious: No
  Sender: FDA-Public Use
  Company Number: US-ELI_LILLY_AND_COMPANY-US202311012865

PATIENT
  Age: 73 Year
  Sex: Female

DRUGS (4)
  1. HUMALOG [Suspect]
     Active Substance: INSULIN LISPRO
     Indication: Type 1 diabetes mellitus
     Dosage: 68 U, UNKNOWN
     Route: 065
  2. INSULIN LISPRO [Suspect]
     Active Substance: INSULIN LISPRO
     Indication: Type 1 diabetes mellitus
     Dosage: 67.2 U, UNKNOWN
     Route: 065
     Dates: start: 20231029
  3. INSULIN LISPRO [Suspect]
     Active Substance: INSULIN LISPRO
     Dosage: 67.2 U, UNKNOWN
     Route: 065
  4. INSULIN LISPRO [Suspect]
     Active Substance: INSULIN LISPRO
     Dosage: 67.2 U, UNKNOWN
     Route: 065

REACTIONS (3)
  - Incorrect dose administered [Unknown]
  - Drug ineffective [Unknown]
  - Blood glucose increased [Recovering/Resolving]

NARRATIVE: CASE EVENT DATE: 20231030
